FAERS Safety Report 6982879-2 (Version None)
Quarter: 2010Q3

REPORT INFORMATION
  Report Type: 
  Country: None (occurrence: None)
  Receive Date: 20100914
  Receipt Date: 20100511
  Transmission Date: 20110219
  Serious: Yes (Other)
  Sender: FDA-Public Use
  Company Number: US-PFIZER INC-2010034254

PATIENT
  Sex: Male
  Weight: 88 kg

DRUGS (10)
  1. LYRICA [Suspect]
     Indication: DIABETIC NEUROPATHY
     Dosage: 25 MG, 3X/DAY
     Route: 048
     Dates: start: 20081219
  2. PLAVIX [Concomitant]
     Dosage: 75 MG, 1X/DAY
     Route: 048
  3. AMILORIDE [Concomitant]
     Dosage: 5 MG, 2X/DAY
     Route: 048
  4. METFORMIN [Concomitant]
     Dosage: 500 MG, 1X/DAY
     Route: 048
  5. TORSEMIDE [Concomitant]
     Dosage: 20 MG, 1X/DAY
     Route: 048
  6. ATENOLOL [Concomitant]
     Dosage: 50 MG, 1X/DAY
     Route: 048
  7. HYDROXYZINE [Concomitant]
     Dosage: 25 MG, 1X/DAY
     Route: 048
  8. ISOSORBIDE DINITRATE [Concomitant]
     Dosage: 20 MG, 1X/DAY
     Route: 048
  9. ZAROXOLYN [Concomitant]
     Dosage: 2.5 MG, 1X/DAY
     Route: 048
  10. POTASSIUM CHLORIDE [Concomitant]
     Dosage: UNK
     Route: 048

REACTIONS (2)
  - OEDEMA PERIPHERAL [None]
  - VISION BLURRED [None]
